FAERS Safety Report 9441818 (Version 1)
Quarter: 2013Q3

REPORT INFORMATION
  Report Type: Spontaneous
  Country: US (occurrence: US)
  Receive Date: 20130806
  Receipt Date: 20130806
  Transmission Date: 20140515
  Serious: No
  Sender: FDA-Public Use
  Company Number: US-PFIZER INC-2013226596

PATIENT
  Age: 29 Year
  Sex: Male
  Weight: 89.34 kg

DRUGS (5)
  1. NEURONTIN [Suspect]
     Indication: HYPOAESTHESIA
     Dosage: 100 MG, 3X/DAY
     Route: 048
     Dates: start: 20130727
  2. ZOCOR [Concomitant]
     Dosage: UNK
  3. PRILOSEC [Concomitant]
     Dosage: UNK
  4. SYNTHROID [Concomitant]
     Dosage: UNK
  5. VITAMIN D3 [Concomitant]
     Dosage: UNK

REACTIONS (2)
  - Off label use [Unknown]
  - Blood thyroid stimulating hormone increased [Unknown]
